FAERS Safety Report 5234035-6 (Version None)
Quarter: 2007Q1

REPORT INFORMATION
  Report Type: 
  Country: None (occurrence: None)
  Receive Date: 20070208
  Receipt Date: 20070129
  Transmission Date: 20070707
  Serious: Yes (Hospitalization)
  Sender: FDA-Public Use
  Company Number: DE-BOEHRINGER INGELHEIM GMBH, GERMANY-2007-DE-00351DE

PATIENT
  Sex: Male
  Weight: 75 kg

DRUGS (2)
  1. ALNA OCAS [Suspect]
     Indication: BENIGN PROSTATIC HYPERPLASIA
     Route: 048
     Dates: start: 20060420, end: 20060918
  2. TRI.-THIAZID [Concomitant]
     Indication: HYPERTENSION
     Route: 048

REACTIONS (1)
  - RESIDUAL URINE VOLUME [None]
